FAERS Safety Report 4604885-5 (Version None)
Quarter: 2005Q1

REPORT INFORMATION
  Report Type: 
  Country: None (occurrence: None)
  Receive Date: 20050310
  Receipt Date: 20050310
  Transmission Date: 20050727
  Serious: Yes (Disabling)
  Sender: FDA-Public Use
  Company Number: None

PATIENT
  Age: 44 Year
  Sex: Female
  Weight: 61.2356 kg

DRUGS (1)
  1. GENTAMICIN [Suspect]
     Indication: STAPHYLOCOCCAL INFECTION
     Dates: start: 19990522, end: 19991120

REACTIONS (3)
  - DEAFNESS UNILATERAL [None]
  - MENTAL IMPAIRMENT [None]
  - VESTIBULAR DISORDER [None]
